FAERS Safety Report 8205064-5 (Version None)
Quarter: 2012Q1

REPORT INFORMATION
  Report Type: 
  Country: None (occurrence: None)
  Receive Date: 20120313
  Receipt Date: 20120302
  Transmission Date: 20120608
  Serious: Yes (Other)
  Sender: FDA-Public Use
  Company Number: PL-ROCHE-1026068

PATIENT
  Age: 60 Year
  Sex: Female
  Weight: 61.5 kg

DRUGS (2)
  1. VEMURAFENIB [Suspect]
     Indication: METASTATIC MALIGNANT MELANOMA
     Dosage: DATE OF LAST DOSE: 27/DEC/2011
     Route: 048
     Dates: start: 20111102
  2. DICORTINEFF [Concomitant]
     Dosage: TDD: 1 DROP
     Dates: start: 20120124

REACTIONS (1)
  - FIBROUS HISTIOCYTOMA [None]
